FAERS Safety Report 4609195-8 (Version None)
Quarter: 2005Q1

REPORT INFORMATION
  Report Type: 
  Country: None (occurrence: None)
  Receive Date: 20050314
  Receipt Date: 20050303
  Transmission Date: 20050727
  Serious: Yes (Hospitalization)
  Sender: FDA-Public Use
  Company Number: 200412891GDS

PATIENT
  Age: 70 Year
  Sex: Male
  Weight: 62 kg

DRUGS (3)
  1. ASPIRIN [Suspect]
     Indication: ATRIAL FIBRILLATION
     Dosage: 100 MG, TOTAL DAILY, ORAL
     Route: 048
     Dates: start: 20030724, end: 20031009
  2. WARFARIN [Suspect]
     Indication: ATRIAL FIBRILLATION
     Dosage: 2.5 MG, TOTAL DAILY, ORAL
     Route: 048
     Dates: start: 20030728, end: 20030814
  3. BUFFERIN [Suspect]
     Indication: ATRIAL FIBRILLATION
     Dosage: 81 MG, TOTAL DAILY, ORAL
     Route: 048
     Dates: end: 20030717

REACTIONS (11)
  - ARTHRALGIA [None]
  - HYPOKINESIA [None]
  - IATROGENIC INJURY [None]
  - NEOPLASM [None]
  - PAIN IN EXTREMITY [None]
  - PERIPHERAL NERVE PALSY [None]
  - PLATELET COUNT DECREASED [None]
  - POST PROCEDURAL COMPLICATION [None]
  - POST PROCEDURAL HAEMATOMA [None]
  - PROCEDURAL COMPLICATION [None]
  - VASCULAR PSEUDOANEURYSM [None]
